FAERS Safety Report 5052747-4 (Version None)
Quarter: 2006Q3

REPORT INFORMATION
  Report Type: 
  Country: None (occurrence: None)
  Receive Date: 20060717
  Receipt Date: 20060613
  Transmission Date: 20061208
  Serious: Yes (Death)
  Sender: FDA-Public Use
  Company Number: JP-ROCHE-451993

PATIENT
  Age: 71 Year
  Sex: Male
  Weight: 51 kg

DRUGS (6)
  1. TAMIFLU [Suspect]
     Route: 048
     Dates: start: 20060219, end: 20060220
  2. NORVASC [Concomitant]
     Route: 048
     Dates: start: 19980717, end: 20060220
  3. NITOROL R [Concomitant]
     Route: 048
     Dates: start: 19980717, end: 20060220
  4. PLETAL [Concomitant]
     Route: 048
     Dates: start: 19980717, end: 20060220
  5. KINEDAK [Concomitant]
     Route: 048
     Dates: start: 20040607, end: 20060220
  6. HALCION [Concomitant]
     Route: 048
     Dates: start: 19990625, end: 20060220

REACTIONS (10)
  - ANOREXIA [None]
  - ASCITES [None]
  - DIARRHOEA [None]
  - DISSEMINATED INTRAVASCULAR COAGULATION [None]
  - DYSPNOEA [None]
  - HEPATITIS FULMINANT [None]
  - LYMPHOCYTE STIMULATION TEST POSITIVE [None]
  - MULTI-ORGAN FAILURE [None]
  - OLIGURIA [None]
  - RESPIRATORY ARREST [None]
